FAERS Safety Report 4840338-7 (Version None)
Quarter: 2005Q4

REPORT INFORMATION
  Report Type: 
  Country: None (occurrence: None)
  Receive Date: 20051025
  Receipt Date: 20050127
  Transmission Date: 20060501
  Serious: Yes (Hospitalization)
  Sender: FDA-Public Use
  Company Number: HQWYE946628JAN05

PATIENT
  Age: 60 Year
  Sex: Male
  Weight: 74.91 kg

DRUGS (4)
  1. RAPAMUNE [Suspect]
     Indication: PROPHYLAXIS AGAINST TRANSPLANT REJECTION
     Dosage: 2 MG 1X PER 1 DAY,ORAL
     Route: 048
     Dates: start: 20050101, end: 20050127
  2. TACROLIMUS (TACROLIMUS) [Concomitant]
  3. MYCOPHENOLATE MOFETIL (MYCOPHENOLATE MOFETIL) [Concomitant]
  4. PRENDISONE (PREDNISONE) [Concomitant]

REACTIONS (2)
  - INFLUENZA LIKE ILLNESS [None]
  - THROMBOCYTOPENIA [None]
